FAERS Safety Report 8340629-1 (Version None)
Quarter: 2012Q2

REPORT INFORMATION
  Report Type: 
  Country: None (occurrence: None)
  Receive Date: 20120507
  Receipt Date: 20120502
  Transmission Date: 20120825
  Serious: Yes (Hospitalization, Other)
  Sender: FDA-Public Use
  Company Number: GB-ABBOTT-12P-167-0931883-00

PATIENT
  Age: 48 Year
  Sex: Male
  Weight: 114.05 kg

DRUGS (4)
  1. METHOTREXATE [Concomitant]
     Indication: PRODUCT USED FOR UNKNOWN INDICATION
  2. LISINOPRIL [Concomitant]
     Indication: PRODUCT USED FOR UNKNOWN INDICATION
  3. HUMIRA [Suspect]
     Indication: PSORIASIS
     Route: 058
     Dates: start: 20101122
  4. METFORMIN HCL [Concomitant]
     Indication: PRODUCT USED FOR UNKNOWN INDICATION

REACTIONS (9)
  - PYREXIA [None]
  - OROPHARYNGEAL PAIN [None]
  - PHARYNGITIS [None]
  - TACHYCARDIA [None]
  - VIRAL RASH [None]
  - SPLENOMEGALY [None]
  - CYTOMEGALOVIRUS INFECTION [None]
  - LYMPHOCYTOSIS [None]
  - MALAISE [None]
